FAERS Safety Report 16097444 (Version 5)
Quarter: 2021Q4

REPORT INFORMATION
  Report Type: Spontaneous
  Country: US (occurrence: US)
  Receive Date: 20190320
  Receipt Date: 20211116
  Transmission Date: 20220303
  Serious: Yes (Other)
  Sender: FDA-Public Use
  Company Number: US-PFIZER INC-2019121073

PATIENT
  Age: 63 Year
  Sex: Male

DRUGS (25)
  1. PREVACID [Suspect]
     Active Substance: LANSOPRAZOLE
     Indication: Gastrooesophageal reflux disease
     Dosage: 30 MG, UNK
     Dates: start: 20010604, end: 20011231
  2. PROTONIX [Suspect]
     Active Substance: PANTOPRAZOLE SODIUM
     Indication: Gastrooesophageal reflux disease
     Dosage: 40 MG, UNK
     Dates: start: 20101026, end: 2016
  3. AMOXICILLIN\CLAVULANATE POTASSIUM [Concomitant]
     Active Substance: AMOXICILLIN\CLAVULANATE POTASSIUM
     Indication: Antibiotic therapy
     Dosage: UNK (ONE FILL)
     Dates: start: 20170629
  4. ATORVASTATIN [Concomitant]
     Active Substance: ATORVASTATIN
     Indication: Blood cholesterol abnormal
     Dosage: UNK (ONE FILL)
     Dates: start: 20150126
  5. CEFDINIR [Concomitant]
     Active Substance: CEFDINIR
     Indication: Antibiotic therapy
     Dosage: UNK (ONE FILL)
     Dates: start: 20190103
  6. CEFUROXIME [Concomitant]
     Active Substance: CEFUROXIME
     Indication: Antibiotic therapy
     Dosage: UNK (ONE FILL)
     Dates: start: 20171127
  7. CEFUROXIME AXETIL [Concomitant]
     Active Substance: CEFUROXIME AXETIL
     Indication: Steroid therapy
     Dosage: UNK (ONE FILL)
     Dates: start: 20160322
  8. CETIRIZINE [Concomitant]
     Active Substance: CETIRIZINE HYDROCHLORIDE
     Indication: Antiallergic therapy
     Dosage: UNK (ONE FILL)
     Dates: start: 20161116
  9. CLINDAMYCIN [Concomitant]
     Active Substance: CLINDAMYCIN
     Indication: Antibiotic therapy
     Dosage: UNK (ONE FILL)
     Dates: start: 20150412
  10. COLCHICINE [Concomitant]
     Active Substance: COLCHICINE
     Indication: Gout
     Dosage: UNK (ONE FILL)
     Dates: start: 20181206
  11. DOXYCYCLINE HYCLATE [Concomitant]
     Active Substance: DOXYCYCLINE HYCLATE
     Indication: Antibiotic therapy
     Dosage: UNK (ONE FILL)
     Dates: start: 20161229
  12. FENOFIBRATE [Concomitant]
     Active Substance: FENOFIBRATE
     Indication: Blood cholesterol abnormal
     Dosage: UNK
     Dates: start: 2015
  13. FLUTICASONE [Concomitant]
     Active Substance: FLUTICASONE
     Indication: Nasal disorder
     Dosage: UNK (ONE FILL)
     Dates: start: 20181130
  14. LEVOFLOXACIN [Concomitant]
     Active Substance: LEVOFLOXACIN
     Indication: Antibiotic therapy
     Dosage: UNK (ONE FILL)
     Dates: start: 20181130
  15. LORAZEPAM [Concomitant]
     Active Substance: LORAZEPAM
     Indication: Anxiety
     Dosage: UNK
     Dates: start: 2017
  16. METHYLPREDNISOLONE [Concomitant]
     Active Substance: METHYLPREDNISOLONE
     Indication: Steroid therapy
     Dosage: UNK (ONE FILL)
     Dates: start: 20170629
  17. METHYLPREDNISOLONE [Concomitant]
     Active Substance: METHYLPREDNISOLONE
     Dosage: UNK (ONE FILL)
     Dates: start: 20181207
  18. METOPROLOL [Concomitant]
     Active Substance: METOPROLOL
     Indication: Blood pressure abnormal
     Dosage: UNK
     Dates: start: 2018
  19. MUCUS [Concomitant]
     Active Substance: FLUTICASONE PROPIONATE\GUAIFENESIN
     Indication: Antibiotic therapy
     Dosage: UNK (ONE FILL)
     Dates: start: 20181207
  20. PREDNISONE [Concomitant]
     Active Substance: PREDNISONE
     Indication: Blood cholesterol abnormal
     Dosage: UNK (ONE FILL)
     Dates: start: 20180406
  21. RANITIDINE [Concomitant]
     Active Substance: RANITIDINE
     Dosage: UNK, ONLY TOOK FOR FEW MONTHS
     Dates: start: 2017
  22. TRAMADOL [Concomitant]
     Active Substance: TRAMADOL
     Indication: Pain
     Dosage: UNK
     Dates: start: 2015
  23. VASCEPA [Concomitant]
     Active Substance: ICOSAPENT ETHYL
     Indication: Blood cholesterol abnormal
     Dosage: UNK (ONE FILL)
     Dates: start: 20180712
  24. ZANTAC [Concomitant]
     Active Substance: RANITIDINE HYDROCHLORIDE
     Dosage: UNK
     Dates: start: 1992
  25. ZANTAC 150 (RANITIDINE HYDROCHLORIDE) [Concomitant]
     Active Substance: RANITIDINE HYDROCHLORIDE
     Dosage: UNK
     Dates: start: 1992

REACTIONS (3)
  - Chronic kidney disease [Not Recovered/Not Resolved]
  - Renal failure [Unknown]
  - Renal impairment [Not Recovered/Not Resolved]

NARRATIVE: CASE EVENT DATE: 20160101
